FAERS Safety Report 14015517 (Version 8)
Quarter: 2019Q4

REPORT INFORMATION
  Report Type: Spontaneous
  Country: US (occurrence: US)
  Receive Date: 20170927
  Receipt Date: 20191128
  Transmission Date: 20200122
  Serious: Yes (Other)
  Sender: FDA-Public Use
  Company Number: US-PFIZER INC-2017149574

PATIENT
  Age: 81 Year
  Sex: Female
  Weight: 56 kg

DRUGS (18)
  1. XELJANZ [Suspect]
     Active Substance: TOFACITINIB CITRATE
     Indication: RHEUMATOID ARTHRITIS
     Dosage: 5 MG, ALTERNATE DAY
     Dates: start: 201611
  2. FERROUS SULFATE. [Concomitant]
     Active Substance: FERROUS SULFATE
     Indication: MINERAL SUPPLEMENTATION
     Dosage: 325 MG, 1X/DAY
  3. XELJANZ [Suspect]
     Active Substance: TOFACITINIB CITRATE
     Dosage: 5 MG, 1X/DAY
     Route: 048
  4. METHOTREXATE. [Concomitant]
     Active Substance: METHOTREXATE
     Indication: RHEUMATOID ARTHRITIS
     Dosage: 10 MG, WEEKLY (FOUR 2.5MG)
  5. SPIRONOLACTONE. [Concomitant]
     Active Substance: SPIRONOLACTONE
     Indication: FLUID RETENTION
     Dosage: 25 MG, 1X/DAY
  6. VITAMIN D [Concomitant]
     Active Substance: VITAMIN D NOS
     Indication: VITAMIN SUPPLEMENTATION
     Dosage: 6000 IU, DAILY
  7. WARFARIN [Concomitant]
     Active Substance: WARFARIN
     Dosage: UNK
  8. AMIODARONE [Concomitant]
     Active Substance: AMIODARONE
     Dosage: UNK
  9. SYNTHROID [Concomitant]
     Active Substance: LEVOTHYROXINE SODIUM
     Indication: THYROID DISORDER
     Dosage: 125 UG, 1X/DAY
  10. FAMOTIDINE. [Concomitant]
     Active Substance: FAMOTIDINE
     Indication: DYSPEPSIA
     Dosage: 20 MG, AS NEEDED  (TWICE A DAY AS NEEDED; USUALLY ONLY TAKES ONCE A DAY)
  11. MAGNESIUM OXIDE. [Concomitant]
     Active Substance: MAGNESIUM OXIDE
     Dosage: 100 MG, 2X/DAY
  12. XELJANZ [Suspect]
     Active Substance: TOFACITINIB CITRATE
     Dosage: 5 MG, 2X/DAY [ON MONDAY, WEDNESDAY AND FRIDAY AND THEN 5MG ON ALL OTHER DAYS]
  13. CARVEDILOL. [Concomitant]
     Active Substance: CARVEDILOL
     Dosage: UNK
  14. XELJANZ [Suspect]
     Active Substance: TOFACITINIB CITRATE
     Dosage: 5 MG, DAILY [5 MG ONE TAB DAILY EXCEPT MON]
  15. XELJANZ [Suspect]
     Active Substance: TOFACITINIB CITRATE
     Dosage: 5 MG, DAILY [XELJANZ 5MG DAILY AND 1 EXTRA TABLET IN THE EVENING ON MONDAY, WEDNESDAY, AND FRIDAY]
  16. FOLIC ACID. [Concomitant]
     Active Substance: FOLIC ACID
     Dosage: 1 MG, 1X/DAY
  17. METOPROLOL TARTRATE. [Concomitant]
     Active Substance: METOPROLOL TARTRATE
     Dosage: UNK
  18. CALCITONIN, SALMON [Concomitant]
     Active Substance: CALCITONIN SALMON
     Indication: SPINAL FRACTURE
     Dosage: UNK

REACTIONS (4)
  - Off label use [Unknown]
  - Myocardial infarction [Unknown]
  - Stress cardiomyopathy [Unknown]
  - Product use issue [Unknown]

NARRATIVE: CASE EVENT DATE: 201611
